FAERS Safety Report 22259227 (Version 1)
Quarter: 2023Q2

REPORT INFORMATION
  Report Type: Spontaneous
  Country: IL (occurrence: IL)
  Receive Date: 20230427
  Receipt Date: 20230427
  Transmission Date: 20230722
  Serious: Yes (Life-Threatening, Other)
  Sender: FDA-Public Use
  Company Number: IL-PFIZER INC-PV202300071419

PATIENT
  Age: 11 Year
  Sex: Female

DRUGS (4)
  1. CYTARABINE [Suspect]
     Active Substance: CYTARABINE
     Indication: Acute myeloid leukaemia
     Dosage: 200 MG/M2, DAILY
  2. CYTARABINE [Suspect]
     Active Substance: CYTARABINE
     Indication: Bloom syndrome
  3. ETOPOSIDE [Suspect]
     Active Substance: ETOPOSIDE
     Indication: Acute myeloid leukaemia
     Dosage: 200 MG/M2, DAILY
  4. ETOPOSIDE [Suspect]
     Active Substance: ETOPOSIDE
     Indication: Bloom syndrome

REACTIONS (2)
  - Myelofibrosis [Unknown]
  - Bone marrow failure [Unknown]
